FAERS Safety Report 8862663 (Version 2)
Quarter: 2012Q4

REPORT INFORMATION
  Report Type: 
  Country: ES (occurrence: ES)
  Receive Date: 20121026
  Receipt Date: 20121114
  Transmission Date: 20130627
  Serious: Yes (Hospitalization)
  Sender: FDA-Public Use
  Company Number: ES-PFIZER INC-2012266702

PATIENT
  Age: 47 Year
  Sex: Male
  Weight: 140 kg

DRUGS (3)
  1. TRANGOREX [Suspect]
     Indication: ATRIAL FIBRILLATION
     Dosage: 200 mg, daily
     Route: 048
     Dates: start: 20120411
  2. SINTROM [Suspect]
     Indication: ATRIAL FIBRILLATION
     Dosage: UNK
     Route: 048
     Dates: start: 20120411, end: 20120419
  3. ENALAPRIL [Concomitant]
     Dosage: 20 mg, daily
     Dates: start: 20120411

REACTIONS (2)
  - Perirenal haematoma [Recovered/Resolved]
  - Peritoneal haemorrhage [Recovered/Resolved]
